FAERS Safety Report 6244780-1 (Version None)
Quarter: 2009Q2

REPORT INFORMATION
  Report Type: 
  Country: None (occurrence: None)
  Receive Date: 20090625
  Receipt Date: 20090617
  Transmission Date: 20091009
  Serious: Yes (Hospitalization)
  Sender: FDA-Public Use
  Company Number: CN-NOVOPROD-288446

PATIENT
  Sex: Female
  Weight: 64.2 kg

DRUGS (1)
  1. NOVOMIX 30 FLEXPEN [Suspect]
     Indication: DRUG USE FOR UNKNOWN INDICATION

REACTIONS (2)
  - KETOSIS [None]
  - PRODUCT QUALITY ISSUE [None]
